FAERS Safety Report 14600020 (Version 1)
Quarter: 2018Q1

REPORT INFORMATION
  Report Type: Spontaneous
  Country: FI (occurrence: FI)
  Receive Date: 20180305
  Receipt Date: 20180305
  Transmission Date: 20180509
  Serious: Yes (Hospitalization)
  Sender: FDA-Public Use
  Company Number: FI-NOVOPROD-588049

PATIENT
  Age: 25 Year
  Sex: Female

DRUGS (7)
  1. LANTUS [Suspect]
     Active Substance: INSULIN GLARGINE
     Dosage: 28 UNITS
     Route: 051
     Dates: end: 20080101
  2. LANTUS [Suspect]
     Active Substance: INSULIN GLARGINE
     Dosage: 24 IU, QD((20 UNITS IN THE EVENING, 4 UNITS IN THE MORNING))
     Route: 051
  3. NOVORAPID [Suspect]
     Active Substance: INSULIN ASPART
     Indication: TYPE 1 DIABETES MELLITUS
     Dosage: 24 IU, QD((20 UNITS IN THE EVENING, 4 UNITS IN THE MORNING)
     Route: 065
     Dates: start: 20080101
  4. LANTUS [Suspect]
     Active Substance: INSULIN GLARGINE
     Indication: TYPE 1 DIABETES MELLITUS
     Dosage: 33 UNITS
     Route: 051
  5. LANTUS [Suspect]
     Active Substance: INSULIN GLARGINE
     Dosage: 20 UNITS
     Route: 051
     Dates: end: 20090901
  6. HUMALOG [Suspect]
     Active Substance: INSULIN LISPRO
     Indication: TYPE 1 DIABETES MELLITUS
     Dosage: 8-10 UNITS
     Route: 065
     Dates: start: 20080101
  7. HUMALOG [Suspect]
     Active Substance: INSULIN LISPRO
     Dosage: DOSE DECREASED
     Route: 065

REACTIONS (7)
  - Loss of consciousness [Unknown]
  - Amnesia [Unknown]
  - Off label use [Unknown]
  - Seizure [Unknown]
  - Hypoglycaemia [Unknown]
  - Blood glucose fluctuation [Unknown]
  - Loss of consciousness [Unknown]

NARRATIVE: CASE EVENT DATE: 20071028
